FAERS Safety Report 9503981 (Version 1)
Quarter: 2013Q3

REPORT INFORMATION
  Report Type: Spontaneous
  Country: US (occurrence: US)
  Receive Date: 20130906
  Receipt Date: 20130906
  Transmission Date: 20140515
  Serious: Yes (Other)
  Sender: FDA-Public Use
  Company Number: CHPA2013US013801

PATIENT
  Age: 54 Year
  Sex: Male

DRUGS (2)
  1. LAMISIL AT CONTINUOUS SPRAY, ATHLETE^S FOOT [Suspect]
     Dosage: UNK, PRN
     Route: 061
  2. KETOCONAZOLE [Concomitant]
     Dosage: UNK, UNK

REACTIONS (2)
  - Blood cholesterol increased [Unknown]
  - Off label use [Unknown]
